FAERS Safety Report 7978099-5 (Version None)
Quarter: 2011Q4

REPORT INFORMATION
  Report Type: 
  Country: None (occurrence: None)
  Receive Date: 20111212
  Receipt Date: 20111212
  Transmission Date: 20120403
  Serious: Yes (Hospitalization)
  Sender: FDA-Public Use
  Company Number: None

PATIENT
  Sex: Female

DRUGS (1)
  1. XELODA [Suspect]
     Indication: BREAST CANCER
     Dosage: 1500MG BID X 14 D PO
     Route: 048
     Dates: start: 20111001, end: 20111202

REACTIONS (3)
  - FALL [None]
  - BALANCE DISORDER [None]
  - OEDEMA PERIPHERAL [None]
